FAERS Safety Report 10697573 (Version 1)
Quarter: 2015Q1

REPORT INFORMATION
  Report Type: Spontaneous
  Country: US (occurrence: None)
  Receive Date: 20150107
  Receipt Date: 20150107
  Transmission Date: 20150721
  Serious: Yes (Death)
  Sender: FDA-Public Use
  Company Number: None

PATIENT
  Age: 89 Year
  Sex: Male
  Weight: 66 kg

DRUGS (4)
  1. MORPHINE [Suspect]
     Active Substance: MORPHINE
     Indication: PERIPHERAL ARTERIAL OCCLUSIVE DISEASE
     Route: 042
     Dates: start: 20140530, end: 20141030
  2. NALOXONE [Concomitant]
     Active Substance: NALOXONE
  3. MORPHINE [Suspect]
     Active Substance: MORPHINE
     Indication: PAIN IN EXTREMITY
     Route: 042
     Dates: start: 20140530, end: 20141030
  4. MORPHINE [Suspect]
     Active Substance: MORPHINE
     Indication: ARTERIOSCLEROSIS
     Route: 042
     Dates: start: 20140530, end: 20141030

REACTIONS (8)
  - Lethargy [None]
  - Restlessness [None]
  - Cardio-respiratory arrest [None]
  - Nodal rhythm [None]
  - Nausea [None]
  - Cardiac arrest [None]
  - Vomiting [None]
  - Moaning [None]

NARRATIVE: CASE EVENT DATE: 20141030
